FAERS Safety Report 7235741-4 (Version None)
Quarter: 2011Q1

REPORT INFORMATION
  Report Type: 
  Country: None (occurrence: None)
  Receive Date: 20110120
  Receipt Date: 20110110
  Transmission Date: 20110831
  Serious: Yes (Other)
  Sender: FDA-Public Use
  Company Number: US-MYLANLABS-2010S1017053

PATIENT
  Age: 58 Year
  Sex: Female
  Weight: 67.59 kg

DRUGS (3)
  1. MULTIVITAMIN [Concomitant]
  2. FLURBIPROFEN [Concomitant]
  3. IPRATROPIUM BROMIDE [Suspect]
     Indication: UPPER RESPIRATORY TRACT INFECTION
     Dates: start: 20100520, end: 20100520

REACTIONS (1)
  - CONVULSION [None]
